FAERS Safety Report 7495665-4 (Version None)
Quarter: 2011Q2

REPORT INFORMATION
  Report Type: 
  Country: None (occurrence: None)
  Receive Date: 20110523
  Receipt Date: 20110516
  Transmission Date: 20111010
  Serious: Yes (Other)
  Sender: FDA-Public Use
  Company Number: US-PFIZER INC-2011080959

PATIENT
  Sex: Female
  Weight: 64.4 kg

DRUGS (13)
  1. LYRICA [Suspect]
     Indication: FIBROMYALGIA
  2. LIBRAX [Concomitant]
     Dosage: 20 MG, UNK
  3. ZOLOFT [Concomitant]
     Dosage: 100MG ONE AND HALF TABLET
  4. ZYPREXA [Concomitant]
     Indication: BIPOLAR I DISORDER
     Dosage: 20 MG AT BEDTIME
     Route: 048
     Dates: start: 20060213
  5. TEMAZEPAM [Concomitant]
     Indication: INSOMNIA
     Dosage: 15 MG AT BEDTIME
     Route: 048
     Dates: start: 20101206
  6. NEXIUM [Concomitant]
     Dosage: AS NEEDED
  7. PROMETHAZINE [Concomitant]
     Dosage: UNK
  8. DEPAKOTE [Concomitant]
     Indication: BIPOLAR I DISORDER
     Dosage: 500 MG, 2X/DAY
     Dates: start: 20071105
  9. FIORICET [Concomitant]
     Dosage: UNK
  10. LYRICA [Suspect]
     Indication: NEURALGIA
     Dosage: 150 MG, 1X/DAY
     Route: 048
     Dates: start: 20090101, end: 20110401
  11. BENADRYL [Concomitant]
     Dosage: AS NEEDED
  12. RELPAX [Concomitant]
     Dosage: AS NEEDED
  13. PREMARIN [Concomitant]
     Dosage: UNK

REACTIONS (8)
  - DEPRESSION [None]
  - DISORIENTATION [None]
  - DISTURBANCE IN ATTENTION [None]
  - SUICIDAL IDEATION [None]
  - CONFUSIONAL STATE [None]
  - FEELING ABNORMAL [None]
  - ABNORMAL BEHAVIOUR [None]
  - INCORRECT DOSE ADMINISTERED [None]
